FAERS Safety Report 5076667-4 (Version None)
Quarter: 2006Q3

REPORT INFORMATION
  Report Type: 
  Country: None (occurrence: None)
  Receive Date: 20060810
  Receipt Date: 20060803
  Transmission Date: 20061208
  Serious: Yes (Hospitalization)
  Sender: FDA-Public Use
  Company Number: FR-AVENTIS-200612715FR

PATIENT
  Age: 85 Year
  Sex: Female

DRUGS (7)
  1. LOVENOX [Suspect]
     Indication: THROMBOSIS PROPHYLAXIS
     Route: 058
     Dates: start: 20060706, end: 20060707
  2. LOVENOX [Suspect]
     Indication: HUMERUS FRACTURE
     Route: 058
     Dates: start: 20060706, end: 20060707
  3. TRIMETAZIDINE [Concomitant]
     Route: 048
  4. LEVOTHYROXINE SODIUM [Concomitant]
     Indication: HYPOTHYROIDISM
     Route: 048
  5. MONICOR LP [Concomitant]
     Route: 048
  6. ETIOVEN [Concomitant]
     Indication: VENOUS INSUFFICIENCY
     Route: 048
  7. FENOFIBRATE [Concomitant]
     Indication: HYPERCHOLESTEROLAEMIA
     Route: 048

REACTIONS (1)
  - PANCYTOPENIA [None]
